FAERS Safety Report 8220021-0 (Version None)
Quarter: 2012Q1

REPORT INFORMATION
  Report Type: 
  Country: None (occurrence: None)
  Receive Date: 20120320
  Receipt Date: 20120313
  Transmission Date: 20120608
  Serious: Yes (Death)
  Sender: FDA-Public Use
  Company Number: AU-BRISTOL-MYERS SQUIBB COMPANY-16452336

PATIENT
  Age: 63 Year

DRUGS (1)
  1. YERVOY [Suspect]
     Indication: METASTATIC MALIGNANT MELANOMA
     Dosage: 3MG/KG,LAST INFUSION ON 06JAN12
     Route: 042
     Dates: start: 20111124

REACTIONS (1)
  - DEATH [None]
